FAERS Safety Report 7958100-5 (Version None)
Quarter: 2011Q4

REPORT INFORMATION
  Report Type: 
  Country: None (occurrence: None)
  Receive Date: 20111205
  Receipt Date: 20111122
  Transmission Date: 20120403
  Serious: Yes (Death, Hospitalization)
  Sender: FDA-Public Use
  Company Number: DE-MYLANLABS-2011S1024540

PATIENT
  Age: 55 Year
  Sex: Male

DRUGS (5)
  1. MELPERONE [Suspect]
     Dosage: 150 MG/DAY
     Route: 065
  2. DULOXETINE HYDROCHLORIDE [Suspect]
     Dosage: 120 MG/DAY
     Route: 065
  3. AMITRIPTYLINE HCL [Suspect]
     Dosage: 150 MG/DAY
     Route: 065
  4. ZUCLOPENTHIXOL [Suspect]
     Route: 065
  5. INDOMETHACIN [Suspect]
     Dosage: 150 MG/DAY
     Route: 065

REACTIONS (6)
  - WATER INTOXICATION [None]
  - CARDIO-RESPIRATORY ARREST [None]
  - HYPONATRAEMIA [None]
  - SUICIDAL IDEATION [None]
  - LOSS OF CONSCIOUSNESS [None]
  - BLOOD POTASSIUM DECREASED [None]
